FAERS Safety Report 25646426 (Version 1)
Quarter: 2025Q3

REPORT INFORMATION
  Report Type: Spontaneous
  Country: US (occurrence: None)
  Receive Date: 20250805
  Receipt Date: 20250805
  Transmission Date: 20251021
  Serious: No
  Sender: Harrow Health
  Company Number: US-HARROW-HAR-2025-US-00530

PATIENT
  Sex: Male

DRUGS (1)
  1. NATACYN [Suspect]
     Active Substance: NATAMYCIN
     Route: 047

REACTIONS (3)
  - Eye pain [Unknown]
  - Tear discolouration [Unknown]
  - Liquid product physical issue [Unknown]
